FAERS Safety Report 5432650-8 (Version None)
Quarter: 2007Q3

REPORT INFORMATION
  Report Type: 
  Country: None (occurrence: None)
  Receive Date: 20070831
  Receipt Date: 20070705
  Transmission Date: 20080115
  Serious: No
  Sender: FDA-Public Use
  Company Number: A0661597A

PATIENT
  Age: 56 Year
  Sex: Female
  Weight: 81 kg

DRUGS (2)
  1. ALLI [Suspect]
     Dates: start: 20070701, end: 20070703
  2. SYNTHROID [Concomitant]

REACTIONS (1)
  - HEADACHE [None]
